FAERS Safety Report 5366705-3 (Version None)
Quarter: 2007Q2

REPORT INFORMATION
  Report Type: 
  Country: None (occurrence: None)
  Receive Date: 20070622
  Receipt Date: 20060420
  Transmission Date: 20071010
  Serious: No
  Sender: FDA-Public Use
  Company Number: US-ASTRAZENECA-2006UW07113

PATIENT
  Age: 35 Year
  Sex: Female
  Weight: 59 kg

DRUGS (1)
  1. RHINOCORT [Suspect]
     Indication: SINUS DISORDER
     Route: 045
     Dates: start: 20060411

REACTIONS (3)
  - ABDOMINAL DISCOMFORT [None]
  - NASAL DISCOMFORT [None]
  - THROAT IRRITATION [None]
